FAERS Safety Report 21146660 (Version 1)
Quarter: 2022Q3

REPORT INFORMATION
  Report Type: Spontaneous
  Country: IN (occurrence: IN)
  Receive Date: 20220729
  Receipt Date: 20220729
  Transmission Date: 20221026
  Serious: Yes (Other)
  Sender: FDA-Public Use
  Company Number: IN-SA-2022SA293692

PATIENT
  Age: 17 Year
  Sex: Male

DRUGS (4)
  1. ISONIAZID [Suspect]
     Active Substance: ISONIAZID
     Indication: Pulmonary tuberculosis
     Dosage: UNK
  2. RIFAMPIN [Suspect]
     Active Substance: RIFAMPIN
     Indication: Pulmonary tuberculosis
     Dosage: UNK
  3. PYRAZINAMIDE [Suspect]
     Active Substance: PYRAZINAMIDE
     Indication: Pulmonary tuberculosis
     Dosage: UNK
  4. ETHAMBUTOL [Suspect]
     Active Substance: ETHAMBUTOL HYDROCHLORIDE
     Indication: Pulmonary tuberculosis
     Dosage: UNK

REACTIONS (8)
  - Optic neuropathy [Recovered/Resolved]
  - Blindness [Recovered/Resolved]
  - Pupillary reflex impaired [Recovered/Resolved]
  - Optic disc hyperaemia [Recovered/Resolved]
  - Papilloedema [Recovered/Resolved]
  - Retinal vascular disorder [Recovered/Resolved]
  - Retinal microangiopathy [Recovered/Resolved]
  - Hereditary optic atrophy [Recovered/Resolved]
